FAERS Safety Report 11242658 (Version 1)
Quarter: 2015Q3

REPORT INFORMATION
  Report Type: Spontaneous
  Country: US (occurrence: None)
  Receive Date: 20150706
  Receipt Date: 20150706
  Transmission Date: 20151125
  Serious: Yes (Disabling)
  Sender: FDA-Public Use
  Company Number: None

PATIENT
  Age: 24 Year
  Sex: Female
  Weight: 56.7 kg

DRUGS (6)
  1. NEXPLANON [Concomitant]
     Active Substance: ETONOGESTREL
  2. VITAMIN D [Concomitant]
     Active Substance: CHOLECALCIFEROL
  3. MIDODRINE [Concomitant]
     Active Substance: MIDODRINE
  4. NEUROTIN [Concomitant]
     Active Substance: GABAPENTIN
  5. NEXPLANON [Suspect]
     Active Substance: ETONOGESTREL
  6. TYLENOL [Concomitant]
     Active Substance: ACETAMINOPHEN

REACTIONS (11)
  - Contusion [None]
  - Hypoaesthesia [None]
  - Brain stem syndrome [None]
  - Medical device complication [None]
  - Muscle spasms [None]
  - Gait disturbance [None]
  - Post procedural complication [None]
  - Nerve injury [None]
  - Inflammation [None]
  - Sleep disorder due to general medical condition, insomnia type [None]
  - Peripheral swelling [None]

NARRATIVE: CASE EVENT DATE: 20150325
